FAERS Safety Report 6016819-X (Version None)
Quarter: 2008Q4

REPORT INFORMATION
  Report Type: 
  Country: None (occurrence: None)
  Receive Date: 20081222
  Receipt Date: 20081215
  Transmission Date: 20090506
  Serious: Yes (Hospitalization, Other)
  Sender: FDA-Public Use
  Company Number: US-CVT-080109

PATIENT

DRUGS (16)
  1. RANEXA [Suspect]
     Indication: ANGINA PECTORIS
     Dosage: 500 MG, BID
     Route: 048
     Dates: start: 20080901, end: 20081108
  2. RANEXA [Suspect]
     Dosage: 1000 MG, BID
     Route: 048
     Dates: start: 20081109
  3. LISINOPRIL                         /00894001/ [Concomitant]
     Indication: HYPERTENSION
     Dosage: 10 MG, BID
     Route: 048
  4. LISINOPRIL                         /00894001/ [Concomitant]
     Indication: CORONARY ARTERY DISEASE
  5. LASIX [Concomitant]
     Indication: HYPERTENSION
     Dosage: 40 MG, BID
     Route: 048
  6. BISOPROLOL                         /00802601/ [Concomitant]
     Indication: HYPERTENSION
     Dosage: 5 MG, BID
     Route: 048
  7. BISOPROLOL                         /00802601/ [Concomitant]
     Indication: CORONARY ARTERY DISEASE
  8. BISOPROLOL                         /00802601/ [Concomitant]
     Indication: ANGINA PECTORIS
  9. COUMADIN [Concomitant]
     Indication: ATRIAL FIBRILLATION
     Dosage: UNK, UNK
  10. ADVAIR DISKUS 250/50 [Concomitant]
     Indication: ASTHMA
     Dosage: 1 PUFF, BID
     Route: 055
  11. ATROVENT [Concomitant]
     Indication: ASTHMA
     Dosage: 2 PUFF, TID
     Route: 055
  12. XOPENEX [Concomitant]
     Indication: ASTHMA
     Dosage: 1.25 MG, TID
     Route: 055
  13. NITROGLYCERIN [Concomitant]
     Dosage: 1 UNITS, QD
     Route: 062
  14. LOVAZA [Concomitant]
     Dosage: 2 TABLET, QD
     Route: 048
     Dates: start: 20080310
  15. ZOCOR [Concomitant]
     Dosage: 10 MG, QD
     Route: 048
     Dates: start: 20080310, end: 20080101
  16. PROTONIX                           /01263201/ [Concomitant]
     Indication: HYPERTENSION
     Dosage: 40 MG, QD
     Route: 048

REACTIONS (1)
  - CONVULSION [None]
